FAERS Safety Report 9070936 (Version 1)
Quarter: 2013Q1

REPORT INFORMATION
  Report Type: Report from Study
  Country: JP (occurrence: JP)
  Receive Date: 20130129
  Receipt Date: 20130129
  Transmission Date: 20140127
  Serious: No
  Sender: FDA-Public Use
  Company Number: JP-GLAXOSMITHKLINE-B0665749A

PATIENT
  Age: 36 None
  Sex: Male
  Weight: 66 kg

DRUGS (28)
  1. ARRANON [Suspect]
     Indication: T-CELL TYPE ACUTE LEUKAEMIA
     Dosage: 867MGM2 PER DAY
     Route: 042
     Dates: start: 20090727, end: 20100727
  2. ARRANON [Suspect]
     Indication: T-CELL TYPE ACUTE LEUKAEMIA
     Dosage: 1011MGM2 PER DAY
     Route: 042
     Dates: start: 20090729, end: 20090729
  3. ARRANON [Suspect]
     Indication: T-CELL TYPE ACUTE LEUKAEMIA
     Dosage: 1011MGM2 PER DAY
     Route: 042
     Dates: start: 20090731, end: 20090731
  4. ARRANON [Suspect]
     Indication: T-CELL TYPE ACUTE LEUKAEMIA
     Dosage: 1156MGM2 PER DAY
     Route: 042
     Dates: start: 20090817, end: 20090817
  5. ARRANON [Suspect]
     Indication: T-CELL TYPE ACUTE LEUKAEMIA
     Dosage: 1156MGM2 PER DAY
     Route: 042
     Dates: start: 20090819, end: 20090819
  6. ARRANON [Suspect]
     Indication: T-CELL TYPE ACUTE LEUKAEMIA
     Dosage: 1156MGM2 PER DAY
     Route: 042
     Dates: start: 20090821, end: 20090821
  7. ARRANON [Suspect]
     Indication: T-CELL TYPE ACUTE LEUKAEMIA
     Dosage: 1156MGM2 PER DAY
     Route: 042
     Dates: start: 20090910, end: 20090910
  8. ARRANON [Suspect]
     Indication: T-CELL TYPE ACUTE LEUKAEMIA
     Dosage: 1156MGM2 PER DAY
     Route: 042
     Dates: start: 20090912, end: 20090912
  9. ARRANON [Suspect]
     Indication: T-CELL TYPE ACUTE LEUKAEMIA
     Dosage: 1156MGM2 PER DAY
     Route: 042
     Dates: start: 20090914, end: 20090914
  10. ARRANON [Suspect]
     Indication: T-CELL TYPE ACUTE LEUKAEMIA
     Dosage: 1156MGM2 PER DAY
     Route: 042
     Dates: start: 20100602, end: 20100602
  11. ARRANON [Suspect]
     Indication: T-CELL TYPE ACUTE LEUKAEMIA
     Dosage: 1156MGM2 PER DAY
     Route: 042
     Dates: start: 20100604, end: 20100604
  12. ARRANON [Suspect]
     Indication: T-CELL TYPE ACUTE LEUKAEMIA
     Dosage: 1156MGM2 PER DAY
     Route: 042
     Dates: start: 20100606, end: 20100606
  13. ARRANON [Suspect]
     Indication: T-CELL TYPE ACUTE LEUKAEMIA
     Dosage: 1156MGM2 PER DAY
     Route: 042
     Dates: start: 20100706, end: 20100706
  14. ARRANON [Suspect]
     Indication: T-CELL TYPE ACUTE LEUKAEMIA
     Dosage: 1156MGM2 PER DAY
     Route: 042
     Dates: start: 20100708, end: 20100708
  15. ARRANON [Suspect]
     Indication: T-CELL TYPE ACUTE LEUKAEMIA
     Dosage: 1156MGM2 PER DAY
     Route: 042
     Dates: start: 20100710, end: 20100710
  16. CYTARABINE [Concomitant]
     Indication: NEOPLASM MALIGNANT
     Route: 042
  17. PARIET [Concomitant]
     Indication: PROPHYLAXIS AGAINST GASTROINTESTINAL ULCER
     Route: 048
     Dates: start: 20090501, end: 20100921
  18. CONSTAN [Concomitant]
     Indication: INSOMNIA
     Route: 048
     Dates: start: 20090501, end: 20100921
  19. SELBEX [Concomitant]
     Indication: PROPHYLAXIS
     Route: 048
     Dates: start: 20090501, end: 20100921
  20. MAGLAX [Concomitant]
     Indication: CONSTIPATION
     Route: 048
     Dates: start: 20090501, end: 20100921
  21. URSO [Concomitant]
     Indication: PROPHYLAXIS
     Route: 048
     Dates: start: 20090501, end: 20100921
  22. FOLIAMIN [Concomitant]
     Indication: PROPHYLAXIS
     Route: 048
     Dates: start: 20090501, end: 20100921
  23. CYCLOPHOSPHAMIDE [Concomitant]
     Indication: T-CELL TYPE ACUTE LEUKAEMIA
     Dates: start: 20080624
  24. VINCRISTINE SULFATE [Concomitant]
     Indication: T-CELL TYPE ACUTE LEUKAEMIA
     Dates: start: 20080624
  25. DOXORUBICIN HYDROCHLORIDE [Concomitant]
     Indication: T-CELL TYPE ACUTE LEUKAEMIA
     Dates: start: 20080624
  26. DEXAMETHASONE [Concomitant]
     Indication: T-CELL TYPE ACUTE LEUKAEMIA
     Dates: start: 20080624
  27. METHOTREXATE [Concomitant]
     Route: 033
  28. CYLOCIDE [Concomitant]
     Route: 033

REACTIONS (2)
  - Blood creatine phosphokinase increased [Recovered/Resolved]
  - Hypoaesthesia [Recovering/Resolving]
